FAERS Safety Report 8325762-2 (Version None)
Quarter: 2012Q2

REPORT INFORMATION
  Report Type: 
  Country: None (occurrence: None)
  Receive Date: 20120501
  Receipt Date: 20120423
  Transmission Date: 20120825
  Serious: No
  Sender: FDA-Public Use
  Company Number: US-BIOGENIDEC-2011BI034963

PATIENT
  Sex: Female

DRUGS (1)
  1. TYSABRI [Suspect]
     Indication: MULTIPLE SCLEROSIS
     Route: 042
     Dates: start: 20110603

REACTIONS (12)
  - ALOPECIA [None]
  - NAIL BED TENDERNESS [None]
  - PAIN IN EXTREMITY [None]
  - VITAMIN D DEFICIENCY [None]
  - BALANCE DISORDER [None]
  - APHASIA [None]
  - ARTHRALGIA [None]
  - ONYCHOMADESIS [None]
  - BLOOD IRON DECREASED [None]
  - GAIT DISTURBANCE [None]
  - FATIGUE [None]
  - URINARY INCONTINENCE [None]
